FAERS Safety Report 5377101-7 (Version None)
Quarter: 2007Q2

REPORT INFORMATION
  Report Type: 
  Country: None (occurrence: None)
  Receive Date: 20070628
  Receipt Date: 20070628
  Transmission Date: 20071010
  Serious: Yes (Other)
  Sender: FDA-Public Use
  Company Number: None

PATIENT
  Age: 19 Year
  Sex: Female

DRUGS (1)
  1. CORICIDIN [Suspect]
     Indication: EUPHORIC MOOD

REACTIONS (7)
  - BALANCE DISORDER [None]
  - DYSARTHRIA [None]
  - EYELID PTOSIS [None]
  - IMPAIRED DRIVING ABILITY [None]
  - INTENTIONAL OVERDOSE [None]
  - NYSTAGMUS [None]
  - SPEECH DISORDER [None]
